FAERS Safety Report 20181763 (Version 1)
Quarter: 2021Q4

REPORT INFORMATION
  Report Type: Spontaneous
  Country: FR (occurrence: FR)
  Receive Date: 20211214
  Receipt Date: 20211214
  Transmission Date: 20220303
  Serious: Yes (Life-Threatening, Hospitalization, Other)
  Sender: FDA-Public Use
  Company Number: None

PATIENT
  Age: 70 Year
  Sex: Female
  Weight: 78 kg

DRUGS (2)
  1. YERVOY [Suspect]
     Active Substance: IPILIMUMAB
     Indication: Metastatic malignant melanoma
     Dosage: 264 MILLIGRAM 1 CYCLICAL
     Route: 041
     Dates: start: 20210913, end: 20211025
  2. OPDIVO [Suspect]
     Active Substance: NIVOLUMAB
     Indication: Metastatic malignant melanoma
     Dosage: 88 MILLIGRAM 1 CYCLICAL
     Route: 041
     Dates: start: 20210913, end: 20211025

REACTIONS (6)
  - Hypersensitivity pneumonitis [Recovering/Resolving]
  - Hyperfibrinolysis [Recovered/Resolved]
  - Hepatic cytolysis [Recovered/Resolved]
  - Lichenoid keratosis [Recovering/Resolving]
  - Oesophagitis [Recovered/Resolved]
  - Prescribed overdose [Unknown]

NARRATIVE: CASE EVENT DATE: 20211025
